FAERS Safety Report 8344989-7 (Version None)
Quarter: 2012Q2

REPORT INFORMATION
  Report Type: 
  Country: None (occurrence: None)
  Receive Date: 20120508
  Receipt Date: 20081104
  Transmission Date: 20120825
  Serious: Yes (Hospitalization)
  Sender: FDA-Public Use
  Company Number: US-TEVA-US024487

PATIENT
  Sex: Male

DRUGS (10)
  1. DITROPAN [Concomitant]
     Dosage: 15 MILLIGRAM;
     Route: 065
  2. FLOMAX [Concomitant]
     Dosage: 4 MILLIGRAM;
     Route: 065
  3. COUMADIN [Concomitant]
     Route: 065
  4. TRISENOX [Suspect]
     Route: 030
     Dates: start: 20080825, end: 20080826
  5. ZESTRIL [Concomitant]
     Dosage: 20 MILLIGRAM;
     Route: 065
  6. MUCOFEN [Concomitant]
     Dosage: 600 MILLIGRAM;
     Route: 065
  7. LASIX [Concomitant]
     Dosage: 40 MILLIGRAM;
     Route: 065
  8. TRETINOIN [Concomitant]
     Dosage: 90 MILLIGRAM; 40MG QAM AND 50MG QPM
     Route: 065
  9. TRISENOX [Suspect]
     Indication: ACUTE PROMYELOCYTIC LEUKAEMIA
     Dosage: .15 MG/KG;
     Route: 030
     Dates: start: 20080728, end: 20080802
  10. TRISENOX [Suspect]
     Route: 030
     Dates: start: 20080818, end: 20080820

REACTIONS (6)
  - CHILLS [None]
  - CHEST PAIN [None]
  - PNEUMONIA [None]
  - DEEP VEIN THROMBOSIS [None]
  - TREMOR [None]
  - CONFUSIONAL STATE [None]
